FAERS Safety Report 9678063 (Version 1)
Quarter: 2013Q4

REPORT INFORMATION
  Report Type: Spontaneous
  Country: JP (occurrence: JP)
  Receive Date: 20131108
  Receipt Date: 20131108
  Transmission Date: 20140711
  Serious: Yes (Other)
  Sender: FDA-Public Use
  Company Number: JP-ASTRAZENECA-2013SE80547

PATIENT
  Sex: 0

DRUGS (1)
  1. MARCAIN SPINAL [Suspect]
     Indication: SPINAL ANAESTHESIA
     Dosage: 1.5 TO 2.8 ML, AVERAGE OF 2.1 ML
     Route: 037

REACTIONS (1)
  - Deep vein thrombosis [Recovering/Resolving]
